FAERS Safety Report 9410674 (Version 1)
Quarter: 2013Q3

REPORT INFORMATION
  Report Type: Other
  Country: GB (occurrence: GB)
  Receive Date: 20130719
  Receipt Date: 20130719
  Transmission Date: 20140515
  Serious: Yes (Death)
  Sender: FDA-Public Use
  Company Number: GB-BRISTOL-MYERS SQUIBB COMPANY-19082171

PATIENT
  Age: 63 Year
  Sex: Female

DRUGS (2)
  1. CARBOPLATIN [Suspect]
     Indication: OVARIAN CANCER METASTATIC
  2. PACLITAXEL [Suspect]
     Indication: OVARIAN CANCER METASTATIC

REACTIONS (2)
  - Tumour lysis syndrome [Fatal]
  - Multi-organ failure [Fatal]
